FAERS Safety Report 6804698-X (Version None)
Quarter: 2010Q2

REPORT INFORMATION
  Report Type: 
  Country: None (occurrence: None)
  Receive Date: 20100628
  Receipt Date: 20070430
  Transmission Date: 20101027
  Serious: No
  Sender: FDA-Public Use
  Company Number: US-PFIZER INC-2007034334

PATIENT
  Sex: Male

DRUGS (5)
  1. XALATAN [Suspect]
     Indication: GLAUCOMA
     Route: 031
  2. ACIPHEX [Concomitant]
  3. SPIRIVA [Concomitant]
  4. ADVAIR DISKUS 100/50 [Concomitant]
  5. TRICOR [Concomitant]

REACTIONS (2)
  - EYE IRRITATION [None]
  - EYE PAIN [None]
